FAERS Safety Report 8452684-9 (Version None)
Quarter: 2012Q2

REPORT INFORMATION
  Report Type: 
  Country: None (occurrence: None)
  Receive Date: 20120620
  Receipt Date: 20120426
  Transmission Date: 20120825
  Serious: No
  Sender: FDA-Public Use
  Company Number: US-VERTEX PHARMACEUTICALS INC.-AE-2012-005822

PATIENT
  Sex: Female
  Weight: 100.33 kg

DRUGS (23)
  1. FUROSEMIDE [Concomitant]
     Route: 048
  2. LEVOTHYROXINE SODIUM [Concomitant]
     Indication: THYROID DISORDER
     Route: 048
  3. LACTULOSE [Concomitant]
     Route: 048
  4. LEXAPRO [Concomitant]
     Route: 048
  5. ZYRTEC [Concomitant]
     Indication: HYPERSENSITIVITY
     Route: 048
  6. TRAZODONE HCL [Concomitant]
     Indication: SLEEP DISORDER
     Route: 048
  7. AMLODIPINE [Concomitant]
     Indication: HYPERTENSION
     Route: 048
  8. CRESTOR [Concomitant]
     Route: 048
  9. INCIVEK [Suspect]
     Indication: HEPATITIS C
     Route: 048
     Dates: start: 20120418
  10. ALBUTEROL [Concomitant]
     Indication: CHRONIC OBSTRUCTIVE PULMONARY DISEASE
  11. SPIRIVA [Concomitant]
     Indication: CHRONIC OBSTRUCTIVE PULMONARY DISEASE
  12. FOLIC ACID [Concomitant]
     Route: 048
  13. SUCRALFATE [Concomitant]
     Route: 048
  14. RIBAVIRIN [Concomitant]
     Indication: HEPATITIS C
     Route: 048
     Dates: start: 20120418
  15. LYRICA [Concomitant]
     Route: 048
  16. GEODON [Concomitant]
     Indication: DEPRESSION
     Route: 048
  17. LAMICTAL [Concomitant]
     Indication: DEPRESSION
     Route: 048
  18. XIFAXIN [Concomitant]
     Indication: DIARRHOEA
     Route: 048
  19. CLONAZEPAM [Concomitant]
     Indication: ANXIETY
     Route: 048
  20. OXYGEN [Concomitant]
     Indication: CHRONIC OBSTRUCTIVE PULMONARY DISEASE
  21. PEGASYS [Concomitant]
     Indication: HEPATITIS C
     Route: 058
     Dates: start: 20120418
  22. GEODON [Concomitant]
     Indication: SLEEP DISORDER
  23. PROPRANOLOL [Concomitant]
     Route: 048

REACTIONS (4)
  - MOOD SWINGS [None]
  - ERYTHEMA [None]
  - INAPPROPRIATE SCHEDULE OF DRUG ADMINISTRATION [None]
  - NAUSEA [None]
